FAERS Safety Report 18744717 (Version 1)
Quarter: 2021Q1

REPORT INFORMATION
  Report Type: Spontaneous
  Country: US (occurrence: US)
  Receive Date: 20210115
  Receipt Date: 20210115
  Transmission Date: 20210419
  Serious: No
  Sender: FDA-Public Use
  Company Number: US-009507513-2101USA001585

PATIENT
  Age: 25 Year
  Sex: Female

DRUGS (2)
  1. NUVARING [Suspect]
     Active Substance: ETHINYL ESTRADIOL\ETONOGESTREL
     Indication: CONTRACEPTION
     Dosage: UNK
     Route: 067
     Dates: start: 20201106
  2. NUVARING [Suspect]
     Active Substance: ETHINYL ESTRADIOL\ETONOGESTREL
     Dosage: UNK
     Route: 067
     Dates: start: 202101

REACTIONS (5)
  - Vaginal discharge [Not Recovered/Not Resolved]
  - Inappropriate schedule of product administration [Unknown]
  - Dysmenorrhoea [Recovered/Resolved]
  - Incorrect product administration duration [Unknown]
  - Abnormal withdrawal bleeding [Not Recovered/Not Resolved]

NARRATIVE: CASE EVENT DATE: 20201229
